FAERS Safety Report 7869011-8 (Version None)
Quarter: 2011Q4

REPORT INFORMATION
  Report Type: 
  Country: None (occurrence: None)
  Receive Date: 20111021
  Receipt Date: 20111010
  Transmission Date: 20120403
  Serious: Yes (Other)
  Sender: FDA-Public Use
  Company Number: 2011SPP047951

PATIENT
  Age: 79 Year
  Sex: Male

DRUGS (3)
  1. NAAXIA [Concomitant]
  2. DESLORATADINE [Suspect]
     Indication: SEASONAL ALLERGY
     Dosage: 1 DF, QD
  3. ASPIRIN [Suspect]
     Indication: PRODUCT USED FOR UNKNOWN INDICATION
     Dosage: 75 MG

REACTIONS (4)
  - FALL [None]
  - OEDEMA PERIPHERAL [None]
  - INTRAOCULAR PRESSURE INCREASED [None]
  - MUSCLE HAEMORRHAGE [None]
